FAERS Safety Report 21929785 (Version 3)
Quarter: 2023Q2

REPORT INFORMATION
  Report Type: Spontaneous
  Country: US (occurrence: US)
  Receive Date: 20230131
  Receipt Date: 20230626
  Transmission Date: 20230721
  Serious: Yes (Hospitalization, Other)
  Sender: FDA-Public Use
  Company Number: US-BRISTOL-MYERS SQUIBB COMPANY-2023-012437

PATIENT
  Age: 77 Year
  Sex: Male

DRUGS (1)
  1. POMALYST [Suspect]
     Active Substance: POMALIDOMIDE
     Indication: Renal cyst
     Dosage: TAKE 1 CAPSULE BY MOUTH ON AN EMPTY STOMACH EVERY DAY FOR 21 DAYS ON THEN 7 DAYS OFF
     Route: 048
     Dates: start: 20220607

REACTIONS (10)
  - Confusional state [Recovered/Resolved]
  - Disorientation [Recovered/Resolved]
  - Dehydration [Recovered/Resolved]
  - Blood test abnormal [Recovered/Resolved]
  - Off label use [Unknown]
  - Urinary tract infection [Unknown]
  - Intervertebral disc degeneration [Unknown]
  - Haemoglobin decreased [Not Recovered/Not Resolved]
  - Hemiparesis [Not Recovered/Not Resolved]
  - Dizziness [Not Recovered/Not Resolved]
